FAERS Safety Report 13528698 (Version 4)
Quarter: 2017Q3

REPORT INFORMATION
  Report Type: Spontaneous
  Country: US (occurrence: US)
  Receive Date: 20170509
  Receipt Date: 20170724
  Transmission Date: 20171127
  Serious: Yes (Other)
  Sender: FDA-Public Use
  Company Number: US-BAYER-2017-088046

PATIENT
  Age: 76 Year
  Sex: Female
  Weight: 83 kg

DRUGS (6)
  1. VITAMIN D [Concomitant]
     Active Substance: CHOLECALCIFEROL
     Dosage: UNK, EVERY THURSDAY, FRIDAY + SATURDAY
  2. MIRALAX [Suspect]
     Active Substance: POLYETHYLENE GLYCOL 3350
     Indication: GASTROINTESTINAL DISORDER
     Route: 048
  3. GYNAZOLE-1 [Concomitant]
     Active Substance: BUTOCONAZOLE NITRATE
  4. MIRALAX [Suspect]
     Active Substance: POLYETHYLENE GLYCOL 3350
     Indication: GASTROINTESTINAL DISORDER
     Dosage: UNK
     Route: 048
     Dates: start: 201612, end: 20170628
  5. MIRALAX [Suspect]
     Active Substance: POLYETHYLENE GLYCOL 3350
     Indication: GASTROINTESTINAL DISORDER
     Dosage: 1 DF, HS
     Route: 048
     Dates: start: 201612, end: 20170508
  6. ZYRTEC [Concomitant]
     Active Substance: CETIRIZINE HYDROCHLORIDE

REACTIONS (25)
  - Inappropriate schedule of drug administration [Unknown]
  - Drug hypersensitivity [Unknown]
  - Rash papular [Not Recovered/Not Resolved]
  - Visual impairment [Unknown]
  - Fungal infection [Unknown]
  - Dacryostenosis acquired [Unknown]
  - Incorrect drug administration duration [None]
  - Frequent bowel movements [None]
  - Fatigue [Recovering/Resolving]
  - Rash macular [Unknown]
  - Feeling abnormal [Not Recovered/Not Resolved]
  - Breast disorder [Not Recovered/Not Resolved]
  - Rash papular [Not Recovered/Not Resolved]
  - Bowel movement irregularity [Unknown]
  - Intestinal haemorrhage [Not Recovered/Not Resolved]
  - Drug hypersensitivity [Unknown]
  - Incorrect drug administration duration [Unknown]
  - Ear discomfort [Recovering/Resolving]
  - Rash papular [Unknown]
  - Skin disorder [Not Recovered/Not Resolved]
  - Product use issue [Unknown]
  - Eczema [Unknown]
  - Product use complaint [None]
  - Incorrect drug administration duration [Unknown]
  - Breast swelling [Not Recovered/Not Resolved]

NARRATIVE: CASE EVENT DATE: 201612
